FAERS Safety Report 9411132 (Version 2)
Quarter: 2013Q3

REPORT INFORMATION
  Report Type: Report from Study
  Country: BR (occurrence: BR)
  Receive Date: 20130721
  Receipt Date: 20130924
  Transmission Date: 20140515
  Serious: Yes (Death, Hospitalization, Other)
  Sender: FDA-Public Use
  Company Number: PHHY2013BR076323

PATIENT
  Age: 80 Year
  Sex: Male
  Weight: 78 kg

DRUGS (4)
  1. ONBREZ [Suspect]
     Indication: EMPHYSEMA
     Dosage: 300 UG, QD
     Dates: start: 20130709
  2. ONBREZ [Suspect]
     Indication: OFF LABEL USE
  3. OXIMAX [Suspect]
     Dosage: UNK UKN, UNK
  4. RITMONORM (PROPAFENONE 300MG) [Suspect]
     Indication: ARRHYTHMIA
     Dosage: UNK UKN, UNK

REACTIONS (6)
  - Lung neoplasm malignant [Fatal]
  - Pneumonia [Fatal]
  - Emphysema [Fatal]
  - Dyspnoea [Fatal]
  - Arrhythmia [Fatal]
  - Concomitant disease aggravated [Fatal]
